FAERS Safety Report 7350274-2 (Version None)
Quarter: 2011Q1

REPORT INFORMATION
  Report Type: 
  Country: None (occurrence: None)
  Receive Date: 20110303
  Receipt Date: 20110221
  Transmission Date: 20110831
  Serious: No
  Sender: FDA-Public Use
  Company Number: 2011-00066

PATIENT
  Age: 71 Year
  Sex: Male
  Weight: 195 kg

DRUGS (3)
  1. LOTREL [Concomitant]
  2. AVAPRO [Concomitant]
  3. ZICAM COLD REMEDY ZAVORS [Suspect]
     Dosage: Q 3-6 HOURS X 5 DAYS
     Dates: start: 20110216, end: 20110220

REACTIONS (1)
  - AGEUSIA [None]
